FAERS Safety Report 15861387 (Version 1)
Quarter: 2019Q1

REPORT INFORMATION
  Report Type: Spontaneous
  Country: IN (occurrence: IN)
  Receive Date: 20190124
  Receipt Date: 20190124
  Transmission Date: 20190417
  Serious: Yes (Life-Threatening, Hospitalization, Other)
  Sender: FDA-Public Use
  Company Number: IN-ALEMBIC PHARMACUETICALS LIMITED-2018SCAL000813

PATIENT

DRUGS (1)
  1. TELMISARTAN AND AMLODIPINE [Suspect]
     Active Substance: AMLODIPINE BESYLATE\TELMISARTAN
     Indication: PRODUCT USED FOR UNKNOWN INDICATION
     Dosage: AMLODIPINE 300 MG AND TELMISARTAN 120 MG

REACTIONS (9)
  - Metabolic acidosis [Recovering/Resolving]
  - Suicide attempt [Unknown]
  - Acute kidney injury [Recovering/Resolving]
  - Haemodynamic instability [Recovering/Resolving]
  - Blood pressure decreased [Recovering/Resolving]
  - Shock [Recovering/Resolving]
  - Intentional overdose [Unknown]
  - Vasoplegia syndrome [Recovering/Resolving]
  - Toxicity to various agents [Recovering/Resolving]
